FAERS Safety Report 5414963-9 (Version None)
Quarter: 2007Q3

REPORT INFORMATION
  Report Type: 
  Country: None (occurrence: None)
  Receive Date: 20070813
  Receipt Date: 20070813
  Transmission Date: 20080115
  Serious: Yes (Other)
  Sender: FDA-Public Use
  Company Number: None

PATIENT
  Sex: Male

DRUGS (1)
  1. GENERIC RYTHMOL [Suspect]
     Indication: PALPITATIONS
     Dosage: 225MG

REACTIONS (1)
  - PALPITATIONS [None]
